FAERS Safety Report 5278522-3 (Version None)
Quarter: 2007Q1

REPORT INFORMATION
  Report Type: 
  Country: None (occurrence: None)
  Receive Date: 20070322
  Receipt Date: 20070309
  Transmission Date: 20070707
  Serious: Yes (Death, Hospitalization)
  Sender: FDA-Public Use
  Company Number: 2007SP004529

PATIENT
  Age: 65 Year
  Sex: Female
  Weight: 60.782 kg

DRUGS (3)
  1. RIBAVIRIN [Suspect]
     Indication: HEPATITIS C
  2. PROCRIT [Suspect]
     Indication: ANAEMIA
     Dosage: 40000 IU;QW;SC
     Route: 058
     Dates: start: 20060601, end: 20070123
  3. PEGASYS [Suspect]
     Indication: HEPATITIS C

REACTIONS (1)
  - ANAEMIA [None]
